FAERS Safety Report 10494106 (Version 3)
Quarter: 2014Q4

REPORT INFORMATION
  Report Type: Report from Study
  Country: US (occurrence: US)
  Receive Date: 20141003
  Receipt Date: 20141106
  Transmission Date: 20150528
  Serious: Yes (Other)
  Sender: FDA-Public Use
  Company Number: US-BRISTOL-MYERS SQUIBB COMPANY-21442835

PATIENT
  Age: 59 Year
  Sex: Male
  Weight: 87.35 kg

DRUGS (1)
  1. IPILIMUMAB [Suspect]
     Active Substance: IPILIMUMAB
     Indication: MALIGNANT MELANOMA
     Dosage: LAST DOSE ON 09SEP14?IND: 3MG/KG IV ON D1 OF CYCLES 1-4?MAIN:DAY1 OF 4 TH CY
     Route: 042
     Dates: start: 20140708

REACTIONS (2)
  - Alanine aminotransferase increased [Recovered/Resolved]
  - Headache [Recovered/Resolved]

NARRATIVE: CASE EVENT DATE: 20140918
